FAERS Safety Report 8693992 (Version 3)
Quarter: 2012Q4

REPORT INFORMATION
  Report Type: 
  Country: JP (occurrence: JP)
  Receive Date: 20120731
  Receipt Date: 20120829
  Transmission Date: 20130627
  Serious: Yes (Other)
  Sender: FDA-Public Use
  Company Number: PHHY2012JP064275

PATIENT
  Sex: Male

DRUGS (2)
  1. RIVASTIGMINE [Suspect]
     Indication: DEMENTIA ALZHEIMER^S TYPE
     Route: 062
  2. RIVASTIGMINE [Suspect]
     Dosage: 18 mg, daily
     Route: 062
     Dates: start: 20120303, end: 20120723

REACTIONS (1)
  - Syncope [Unknown]
